FAERS Safety Report 24914371 (Version 1)
Quarter: 2025Q1

REPORT INFORMATION
  Report Type: Spontaneous
  Country: US (occurrence: US)
  Receive Date: 20250203
  Receipt Date: 20250203
  Transmission Date: 20250408
  Serious: No
  Sender: ENDO
  Company Number: US-ENDO USA, INC.-2024-003272

PATIENT
  Sex: Male

DRUGS (4)
  1. FORTESTA [Suspect]
     Active Substance: TESTOSTERONE
     Indication: Blood testosterone decreased
     Route: 065
  2. FORTESTA [Suspect]
     Active Substance: TESTOSTERONE
     Indication: Blood testosterone decreased
     Route: 065
  3. FORTESTA [Suspect]
     Active Substance: TESTOSTERONE
     Route: 065
  4. FORTESTA [Suspect]
     Active Substance: TESTOSTERONE
     Route: 065

REACTIONS (2)
  - Blood testosterone increased [Recovered/Resolved]
  - Product availability issue [Not Recovered/Not Resolved]

NARRATIVE: CASE EVENT DATE: 20230101
